FAERS Safety Report 8077504-6 (Version None)
Quarter: 2012Q1

REPORT INFORMATION
  Report Type: 
  Country: None (occurrence: None)
  Receive Date: 20120127
  Receipt Date: 20120117
  Transmission Date: 20120608
  Serious: Yes (Disabling)
  Sender: FDA-Public Use
  Company Number: US-MUTUAL PHARMACEUTICAL COMPANY, INC.-1-14831530

PATIENT
  Age: 85 Year
  Sex: Female
  Weight: 58.566 kg

DRUGS (4)
  1. SPIRONOLACTONE [Suspect]
     Indication: HYPERTENSION
     Route: 048
  2. DYRENIUM (TRIAMTERENE) 60 MG ONCE DAILY [Concomitant]
  3. FELODIPINE [Suspect]
     Indication: HYPERTENSION
     Route: 048
     Dates: start: 20060418
  4. NORPACE (DISOPYRAMIDE PHOSPHATE) 150 MG 4 TIMES DAILY, LANOXIN (DIGOXI [Concomitant]

REACTIONS (28)
  - BLINDNESS TRANSIENT [None]
  - MUSCULOSKELETAL PAIN [None]
  - PAIN IN EXTREMITY [None]
  - PAINFUL RESPIRATION [None]
  - ANXIETY [None]
  - BLINDNESS [None]
  - HYPOACUSIS [None]
  - DECREASED APPETITE [None]
  - ARTHRITIS [None]
  - NECK PAIN [None]
  - FEELING ABNORMAL [None]
  - EYE PAIN [None]
  - PAIN [None]
  - SKIN MASS [None]
  - HAEMORRHAGE [None]
  - HEADACHE [None]
  - MOBILITY DECREASED [None]
  - TREMOR [None]
  - WEIGHT DECREASED [None]
  - GAIT DISTURBANCE [None]
  - ARTHRALGIA [None]
  - COLOUR BLINDNESS ACQUIRED [None]
  - FLANK PAIN [None]
  - DIZZINESS [None]
  - OPTIC NERVE DISORDER [None]
  - VISUAL IMPAIRMENT [None]
  - SEPSIS [None]
  - DYSGRAPHIA [None]
